FAERS Safety Report 18185591 (Version 1)
Quarter: 2020Q3

REPORT INFORMATION
  Report Type: Spontaneous
  Country: US (occurrence: US)
  Receive Date: 20200821
  Receipt Date: 20200821
  Transmission Date: 20201103
  Serious: Yes (Life-Threatening, Other)
  Sender: FDA-Public Use
  Company Number: None

PATIENT
  Age: 20 Year
  Sex: Female
  Weight: 51.75 kg

DRUGS (1)
  1. ISOTRETINOIN CAPSULES [Suspect]
     Active Substance: ISOTRETINOIN
     Indication: ACNE
     Dosage: ?          QUANTITY:30 CAPSULE(S);?
     Route: 048

REACTIONS (12)
  - Suicide attempt [None]
  - Depression [None]
  - Suicidal ideation [None]
  - Inflammatory bowel disease [None]
  - Crying [None]
  - Product communication issue [None]
  - Joint injury [None]
  - Binge eating [None]
  - Hypophagia [None]
  - Arthralgia [None]
  - Fatigue [None]
  - Disturbance in attention [None]

NARRATIVE: CASE EVENT DATE: 20200727
